FAERS Safety Report 7789180-8 (Version None)
Quarter: 2011Q3

REPORT INFORMATION
  Report Type: 
  Country: None (occurrence: None)
  Receive Date: 20110930
  Receipt Date: 20110919
  Transmission Date: 20111222
  Serious: Yes (Other)
  Sender: FDA-Public Use
  Company Number: CA-JNJFOC-20110910570

PATIENT
  Age: 76 Year
  Sex: Male
  Weight: 150 kg

DRUGS (7)
  1. SPIRIVA [Concomitant]
     Indication: CHRONIC OBSTRUCTIVE PULMONARY DISEASE
     Dosage: ONCE IN THE MORNING
     Route: 065
  2. NICOTINE [Suspect]
     Indication: SMOKING CESSATION THERAPY
     Dosage: 1/2 EVERY HOUR OR SO; 6 AT MOST INITIATED 5 YEARS AGO.
     Route: 048
  3. DRUG NOT SPECIFIED [Concomitant]
     Indication: BLOOD PRESSURE ABNORMAL
     Route: 065
  4. OXYGEN [Concomitant]
     Indication: PRODUCT USED FOR UNKNOWN INDICATION
     Dosage: 3 LITERS PER HOUR
     Route: 065
  5. VENTOLIN HFA [Concomitant]
     Indication: PRODUCT USED FOR UNKNOWN INDICATION
     Dosage: AS NEEDED
     Route: 065
  6. ADVAIR DISKUS 100/50 [Concomitant]
     Indication: PRODUCT USED FOR UNKNOWN INDICATION
     Dosage: 500
     Route: 065
  7. INSULIN [Concomitant]
     Indication: DIABETES MELLITUS
     Dosage: 7030, 12 UNITS; TWO INJECTIONS DAILY
     Route: 065

REACTIONS (3)
  - INTENTIONAL DRUG MISUSE [None]
  - PRODUCT PACKAGING ISSUE [None]
  - DEPENDENCE [None]
